FAERS Safety Report 7627527-3 (Version None)
Quarter: 2011Q3

REPORT INFORMATION
  Report Type: 
  Country: None (occurrence: None)
  Receive Date: 20110721
  Receipt Date: 20090403
  Transmission Date: 20111222
  Serious: Yes (Death, Other)
  Sender: FDA-Public Use
  Company Number: US-BAYER-200916986NA

PATIENT
  Age: 65 Year
  Sex: Female
  Weight: 82.993 kg

DRUGS (17)
  1. ELAVIL [Concomitant]
  2. INSULIN [Concomitant]
     Dosage: UNK
     Route: 042
     Dates: start: 20060124
  3. TRASYLOL [Suspect]
     Dosage: 100 ML, LOADIN DOSE
     Route: 042
     Dates: start: 20060124, end: 20060124
  4. TRASYLOL [Suspect]
     Indication: PRODUCT USED FOR UNKNOWN INDICATION
     Dosage: 1 ML, TEST DOSE
     Route: 042
     Dates: start: 20060124, end: 20060124
  5. MILRINONE [Concomitant]
     Dosage: UNK
     Route: 042
     Dates: start: 20060124, end: 20060124
  6. PROTAMINE SULFATE [Concomitant]
     Dosage: 350 MG, UNK
     Route: 042
     Dates: start: 20060124
  7. ANCEF [Concomitant]
     Dosage: 1.5 G, UNK
     Route: 042
     Dates: start: 20060124, end: 20060224
  8. PLASMA [Concomitant]
     Dosage: 2 U, UNK
     Route: 042
     Dates: start: 20060124
  9. PLATELETS [Concomitant]
     Dosage: 5 U, UNK
     Route: 042
     Dates: start: 20060124
  10. LIPITOR [Concomitant]
  11. TRAMADOL HCL [Concomitant]
  12. ATENOLOL [Concomitant]
  13. ACETYLSALICYLIC ACID SRT [Concomitant]
  14. TRASYLOL [Suspect]
     Dosage: 50 ML/HR
     Route: 042
     Dates: start: 20060124, end: 20060124
  15. FENTANYL [Concomitant]
     Dosage: 750 ?G, UNK
     Route: 042
     Dates: start: 20060124
  16. HEPARIN [Concomitant]
     Dosage: 25000 U, UNK
     Route: 042
     Dates: start: 20060124
  17. RED BLOOD CELLS [Concomitant]
     Dosage: 11 U, UNK
     Route: 042
     Dates: start: 20060124

REACTIONS (12)
  - ANHEDONIA [None]
  - PAIN [None]
  - RENAL INJURY [None]
  - EMOTIONAL DISTRESS [None]
  - RENAL FAILURE [None]
  - ANXIETY [None]
  - RENAL IMPAIRMENT [None]
  - INJURY [None]
  - DEATH [None]
  - STRESS [None]
  - UNEVALUABLE EVENT [None]
  - FEAR [None]
